FAERS Safety Report 8007512-2 (Version None)
Quarter: 2011Q4

REPORT INFORMATION
  Report Type: 
  Country: None (occurrence: None)
  Receive Date: 20111222
  Receipt Date: 20111222
  Transmission Date: 20120403
  Serious: Yes (Hospitalization)
  Sender: FDA-Public Use
  Company Number: None

PATIENT
  Age: 45 Year
  Sex: Female
  Weight: 52.6173 kg

DRUGS (1)
  1. ADCIRCA [Suspect]
     Dosage: 40 MG DAILY ORAL
     Route: 048
     Dates: start: 20110922

REACTIONS (1)
  - INTESTINAL OBSTRUCTION [None]
